FAERS Safety Report 4743413-0 (Version None)
Quarter: 2005Q3

REPORT INFORMATION
  Report Type: 
  Country: None (occurrence: None)
  Receive Date: 20050812
  Receipt Date: 20050804
  Transmission Date: 20060218
  Serious: Yes (Hospitalization, Other)
  Sender: FDA-Public Use
  Company Number: US-SP-2005-01505

PATIENT
  Age: 56 Year
  Sex: Male

DRUGS (1)
  1. THERACYS [Suspect]
     Indication: BLADDER CANCER
     Route: 043
     Dates: start: 20050711

REACTIONS (8)
  - BOVINE TUBERCULOSIS [None]
  - CHILLS [None]
  - DEHYDRATION [None]
  - HYPOVOLAEMIA [None]
  - LUNG DISORDER [None]
  - PYREXIA [None]
  - RASH GENERALISED [None]
  - SEPTIC SHOCK [None]
